FAERS Safety Report 5522507-6 (Version None)
Quarter: 2007Q4

REPORT INFORMATION
  Report Type: 
  Country: None (occurrence: None)
  Receive Date: 20071120
  Receipt Date: 20071109
  Transmission Date: 20080405
  Serious: Yes (Life-Threatening, Other)
  Sender: FDA-Public Use
  Company Number: US-PFIZER INC-2007038545

PATIENT
  Sex: Male
  Weight: 72.6 kg

DRUGS (2)
  1. EXUBERA [Suspect]
     Indication: TYPE 1 DIABETES MELLITUS
  2. ZETIA [Concomitant]

REACTIONS (2)
  - DRUG ADMINISTRATION ERROR [None]
  - HYPOGLYCAEMIA [None]
